FAERS Safety Report 12138464 (Version 10)
Quarter: 2020Q4

REPORT INFORMATION
  Report Type: Spontaneous
  Country: US (occurrence: US)
  Receive Date: 20160302
  Receipt Date: 20201217
  Transmission Date: 20210113
  Serious: Yes (Other)
  Sender: FDA-Public Use
  Company Number: US-PFIZER INC-2016105004

PATIENT
  Age: 62 Year
  Sex: Female

DRUGS (1)
  1. ESTRING [Suspect]
     Active Substance: ESTRADIOL
     Indication: VULVOVAGINAL DRYNESS
     Dosage: 1 DF, EVERY 3 MONTHS (1 RING EVERY 90 DAYS)
     Route: 067

REACTIONS (9)
  - Infection [Unknown]
  - Pain [Unknown]
  - Vaginal odour [Unknown]
  - Intentional product misuse [Unknown]
  - Spondylitis [Not Recovered/Not Resolved]
  - Malaise [Unknown]
  - Drug ineffective [Unknown]
  - Spinal compression fracture [Not Recovered/Not Resolved]
  - Vaginal discharge [Unknown]
